FAERS Safety Report 7969517-7 (Version None)
Quarter: 2011Q4

REPORT INFORMATION
  Report Type: 
  Country: None (occurrence: None)
  Receive Date: 20111212
  Receipt Date: 20111207
  Transmission Date: 20120403
  Serious: Yes (Other)
  Sender: FDA-Public Use
  Company Number: US-ACCORD-011335

PATIENT
  Age: 45 Year
  Sex: Male

DRUGS (3)
  1. LEVETIRACETAM [Suspect]
     Dosage: STARTED WITH 500 MG BD, OVER 2 MTH ESCALATED TO 3000 MG/DAY
  2. DEXAMETHASONE [Concomitant]
  3. TEMOZOLOMIDE [Concomitant]
     Indication: CHEMOTHERAPY

REACTIONS (2)
  - TUBULOINTERSTITIAL NEPHRITIS [None]
  - RENAL FAILURE ACUTE [None]
